FAERS Safety Report 4553722-6 (Version None)
Quarter: 2005Q1

REPORT INFORMATION
  Report Type: 
  Country: None (occurrence: None)
  Receive Date: 20050114
  Receipt Date: 20050114
  Transmission Date: 20050727
  Serious: Yes (Death)
  Sender: FDA-Public Use
  Company Number: None

PATIENT
  Age: 67 Year
  Sex: Female
  Weight: 77 kg

DRUGS (5)
  1. REFLUDAN [Suspect]
     Indication: HEPARIN-INDUCED THROMBOCYTOPENIA
     Dosage: 0.4MG/KG X1, 0.15MG/KG/H
     Dates: start: 20041225, end: 20041227
  2. HEPARIN [Concomitant]
  3. AMIODARONE [Concomitant]
  4. CIPRO [Concomitant]
  5. PLAVIX [Concomitant]

REACTIONS (1)
  - SUBDURAL HAEMATOMA [None]
